APPROVED DRUG PRODUCT: NORETHINDRONE
Active Ingredient: NORETHINDRONE
Strength: 0.35MG
Dosage Form/Route: TABLET;ORAL-28
Application: A091325 | Product #001 | TE Code: AB1
Applicant: LUPIN LTD
Approved: Sep 19, 2011 | RLD: No | RS: No | Type: RX